FAERS Safety Report 9072304 (Version 1)
Quarter: 2013Q1

REPORT INFORMATION
  Report Type: Report from Study
  Country: US (occurrence: US)
  Receive Date: 20130129
  Receipt Date: 20130129
  Transmission Date: 20140127
  Serious: No
  Sender: FDA-Public Use
  Company Number: US-ABBOTT-12P-163-0938897-00

PATIENT
  Age: 55 Year
  Sex: Male

DRUGS (4)
  1. HUMIRA 40 MG/0.8 ML PEN [Suspect]
     Indication: PSORIASIS
     Dates: start: 20120427
  2. PREDNISONE [Suspect]
     Indication: PRODUCT USED FOR UNKNOWN INDICATION
  3. ZEGERID [Concomitant]
     Indication: GASTROOESOPHAGEAL REFLUX DISEASE
     Route: 048
  4. CARAFATE [Concomitant]
     Indication: GASTROOESOPHAGEAL REFLUX DISEASE

REACTIONS (9)
  - Chest pain [Not Recovered/Not Resolved]
  - Gastrooesophageal reflux disease [Not Recovered/Not Resolved]
  - Drug ineffective [Not Recovered/Not Resolved]
  - Arthralgia [Not Recovered/Not Resolved]
  - Dizziness [Not Recovered/Not Resolved]
  - Muscular weakness [Not Recovered/Not Resolved]
  - Fatigue [Not Recovered/Not Resolved]
  - Disturbance in attention [Not Recovered/Not Resolved]
  - Contusion [Not Recovered/Not Resolved]
